FAERS Safety Report 7557944-1 (Version None)
Quarter: 2011Q2

REPORT INFORMATION
  Report Type: 
  Country: None (occurrence: None)
  Receive Date: 20110620
  Receipt Date: 20110609
  Transmission Date: 20111010
  Serious: Yes (Other)
  Sender: FDA-Public Use
  Company Number: B0726922A

PATIENT
  Sex: Male

DRUGS (2)
  1. THEOPHYLLINE [Concomitant]
  2. VENTOLIN HFA [Suspect]
     Indication: ASTHMA
     Dosage: 100MCG AS REQUIRED
     Route: 055

REACTIONS (3)
  - FATIGUE [None]
  - ASTHMA [None]
  - VERTIGO [None]
